FAERS Safety Report 14381932 (Version 2)
Quarter: 2019Q3

REPORT INFORMATION
  Report Type: Spontaneous
  Country: FI (occurrence: FI)
  Receive Date: 20180112
  Receipt Date: 20190726
  Transmission Date: 20191004
  Serious: Yes (Death, Other)
  Sender: FDA-Public Use
  Company Number: FI-009507513-1801FIN003963

PATIENT
  Sex: Female

DRUGS (2)
  1. QUETIAPINE FUMARATE. [Concomitant]
     Active Substance: QUETIAPINE FUMARATE
     Indication: INSOMNIA
     Dosage: LOW DOSE
  2. XELEVIA [Suspect]
     Active Substance: SITAGLIPTIN PHOSPHATE
     Indication: TYPE 2 DIABETES MELLITUS
     Dosage: 100 MG, 1 TABLET PER DAY IN THE MORNINGS
     Route: 048
     Dates: start: 201803

REACTIONS (6)
  - Incorrect route of product administration [Unknown]
  - Gangrene [Fatal]
  - Coeliac disease [Unknown]
  - Mental disorder [Unknown]
  - Feeding tube user [Unknown]
  - Wrong technique in product usage process [Unknown]
